FAERS Safety Report 24134228 (Version 5)
Quarter: 2024Q3

REPORT INFORMATION
  Report Type: Report from Study
  Country: US (occurrence: US)
  Receive Date: 20240724
  Receipt Date: 20240918
  Transmission Date: 20241016
  Serious: Yes (Hospitalization)
  Sender: ABBVIE
  Company Number: US-ABBVIE-5658877

PATIENT
  Sex: Female
  Weight: 58.966 kg

DRUGS (6)
  1. SKYRIZI [Suspect]
     Active Substance: RISANKIZUMAB-RZAA
     Indication: Psoriasis
     Dosage: LAST ADMIN 2024
     Route: 058
     Dates: start: 20240119
  2. SKYRIZI [Suspect]
     Active Substance: RISANKIZUMAB-RZAA
     Indication: Psoriatic arthropathy
     Dosage: LAST ADMIN DATE 2024
     Route: 058
     Dates: start: 20240110
  3. SKYRIZI [Suspect]
     Active Substance: RISANKIZUMAB-RZAA
     Indication: Psoriasis
     Route: 058
     Dates: start: 20240216
  4. SKYRIZI [Suspect]
     Active Substance: RISANKIZUMAB-RZAA
     Dosage: LAST ADMIN DATE 2024
     Route: 058
     Dates: start: 20240120
  5. ALPRAZOLAM [Concomitant]
     Active Substance: ALPRAZOLAM
     Indication: Product used for unknown indication
     Dosage: TAKE 1 TABLET DAILY.
     Route: 048
  6. ESTRADIOL [Concomitant]
     Active Substance: ESTRADIOL
     Indication: Product used for unknown indication
     Route: 061

REACTIONS (45)
  - Hospitalisation [Unknown]
  - Pain [Not Recovered/Not Resolved]
  - Joint lock [Unknown]
  - Epistaxis [Unknown]
  - Adverse drug reaction [Unknown]
  - Loss of personal independence in daily activities [Unknown]
  - Gait inability [Not Recovered/Not Resolved]
  - Neck pain [Not Recovered/Not Resolved]
  - Pain in extremity [Recovered/Resolved]
  - Eye swelling [Recovering/Resolving]
  - Feeding disorder [Unknown]
  - Trismus [Not Recovered/Not Resolved]
  - Dysphagia [Recovering/Resolving]
  - Disturbance in attention [Unknown]
  - Pain in jaw [Recovered/Resolved]
  - Myalgia [Recovering/Resolving]
  - Fatigue [Unknown]
  - Pain in extremity [Unknown]
  - Arthralgia [Unknown]
  - Mental impairment [Unknown]
  - Ocular hyperaemia [Recovering/Resolving]
  - Erythema [Unknown]
  - Musculoskeletal disorder [Unknown]
  - Feeling hot [Unknown]
  - Swelling face [Unknown]
  - Pain [Unknown]
  - Decreased appetite [Recovered/Resolved]
  - Nausea [Recovered/Resolved]
  - Dyspnoea [Unknown]
  - Musculoskeletal disorder [Unknown]
  - Arthralgia [Unknown]
  - Pain in extremity [Unknown]
  - Visual impairment [Unknown]
  - Anxiety [Not Recovered/Not Resolved]
  - Depression [Not Recovered/Not Resolved]
  - Peripheral swelling [Unknown]
  - Swelling face [Unknown]
  - Pyrexia [Unknown]
  - Pain in extremity [Unknown]
  - Arthralgia [Recovered/Resolved]
  - Blepharitis [Not Recovered/Not Resolved]
  - Ocular discomfort [Not Recovered/Not Resolved]
  - Pain in jaw [Unknown]
  - Pain in jaw [Unknown]
  - Dry eye [Unknown]

NARRATIVE: CASE EVENT DATE: 20240101
